FAERS Safety Report 7256029-1 (Version None)
Quarter: 2011Q1

REPORT INFORMATION
  Report Type: 
  Country: None (occurrence: None)
  Receive Date: 20110129
  Receipt Date: 20100503
  Transmission Date: 20110831
  Serious: No
  Sender: FDA-Public Use
  Company Number: US-ABBOTT-10P-163-0639121-00

PATIENT
  Sex: Female
  Weight: 71.732 kg

DRUGS (5)
  1. ALBUTEROL [Concomitant]
     Indication: CHEST DISCOMFORT
  2. HUMIRA [Suspect]
     Indication: PSORIASIS
     Dosage: 83442SP40   EXP: OCT 2011
     Route: 058
     Dates: start: 20080101
  3. GLIPIZIDE [Concomitant]
     Indication: DIABETES MELLITUS
  4. METFORMIN [Concomitant]
     Indication: DIABETES MELLITUS
  5. ALBUTEROL [Concomitant]
     Indication: ASTHMA

REACTIONS (6)
  - COUGH [None]
  - RESPIRATORY TRACT CONGESTION [None]
  - CHILLS [None]
  - PAIN [None]
  - CHEST DISCOMFORT [None]
  - PYREXIA [None]
